FAERS Safety Report 7123951-6 (Version None)
Quarter: 2010Q4

REPORT INFORMATION
  Report Type: 
  Country: None (occurrence: None)
  Receive Date: 20101126
  Receipt Date: 20101123
  Transmission Date: 20110411
  Serious: No
  Sender: FDA-Public Use
  Company Number: US-PFIZER INC-2010155996

PATIENT
  Sex: Female

DRUGS (2)
  1. LOPID [Suspect]
     Dosage: UNK MG, UNK
     Route: 048
  2. PROTONIX [Suspect]
     Dosage: UNK MG, UNK
     Route: 048

REACTIONS (1)
  - HYPERSENSITIVITY [None]
